FAERS Safety Report 9395597 (Version 1)
Quarter: 2013Q3

REPORT INFORMATION
  Report Type: Spontaneous
  Country: IL (occurrence: None)
  Receive Date: 20130705
  Receipt Date: 20130705
  Transmission Date: 20140515
  Serious: Yes (Hospitalization)
  Sender: FDA-Public Use
  Company Number: 2013-2698

PATIENT
  Age: 57 Year
  Sex: Male

DRUGS (1)
  1. SOMATULINE [Suspect]
     Indication: NEUROENDOCRINE TUMOUR
     Dosage: 1 IN 28
     Route: 058
     Dates: start: 20130612

REACTIONS (1)
  - Jaundice [None]
